FAERS Safety Report 9342163 (Version 2)
Quarter: 2013Q2

REPORT INFORMATION
  Report Type: Spontaneous
  Country: JP (occurrence: JP)
  Receive Date: 20130611
  Receipt Date: 20130617
  Transmission Date: 20140414
  Serious: Yes (Hospitalization)
  Sender: FDA-Public Use
  Company Number: JP-EISAI INC-E2090-02679-SPO-JP

PATIENT
  Age: 3 Year
  Sex: Male
  Weight: 13.8 kg

DRUGS (1)
  1. EXCEGRAN [Suspect]
     Indication: EPILEPSY
     Route: 048
     Dates: start: 2013, end: 20130221

REACTIONS (2)
  - Crohn^s disease [Recovering/Resolving]
  - Protein-losing gastroenteropathy [Recovering/Resolving]
